FAERS Safety Report 17707976 (Version 2)
Quarter: 2021Q4

REPORT INFORMATION
  Report Type: Other
  Country: JP (occurrence: JP)
  Receive Date: 20200425
  Receipt Date: 20211103
  Transmission Date: 20220303
  Serious: Yes (Death, Hospitalization, Other)
  Sender: FDA-Public Use
  Company Number: JP-CHUGAI-A2019032395ROCHE

PATIENT
  Age: 91 Year
  Sex: Male

DRUGS (2)
  1. ATEZOLIZUMAB [Suspect]
     Active Substance: ATEZOLIZUMAB
     Indication: Non-small cell lung cancer
     Dosage: RECEIVED DOSE ON 23/APR/2019, 14/MAY/2019, 04/JUN/2019, 25/JUN/2019, 16/JUL/2019.
     Route: 041
     Dates: start: 20190402, end: 20190716
  2. ATEZOLIZUMAB [Suspect]
     Active Substance: ATEZOLIZUMAB
     Indication: Lung adenocarcinoma

REACTIONS (4)
  - Myasthenia gravis [Recovering/Resolving]
  - Cerebral infarction [Unknown]
  - Guillain-Barre syndrome [Recovering/Resolving]
  - Death [Fatal]

NARRATIVE: CASE EVENT DATE: 20190719
